FAERS Safety Report 6606589-6 (Version None)
Quarter: 2010Q1

REPORT INFORMATION
  Report Type: 
  Country: None (occurrence: None)
  Receive Date: 20100226
  Receipt Date: 20100218
  Transmission Date: 20100710
  Serious: Yes (Hospitalization, Other)
  Sender: FDA-Public Use
  Company Number: IT-PFIZER INC-2010021627

PATIENT
  Age: 72 Year
  Sex: Male

DRUGS (2)
  1. ATORVASTATIN CALCIUM [Suspect]
     Indication: DYSLIPIDAEMIA
     Dosage: 20 MG, 1X/DAY
     Dates: start: 20081101, end: 20081201
  2. ENALAPRIL [Concomitant]
     Indication: HYPERTENSION
     Dosage: 5 MG, 2X/DAY

REACTIONS (2)
  - BILIARY TRACT DISORDER [None]
  - CHOLESTASIS [None]
